FAERS Safety Report 6347277-3 (Version None)
Quarter: 2009Q3

REPORT INFORMATION
  Report Type: 
  Country: None (occurrence: None)
  Receive Date: 20090910
  Receipt Date: 20090831
  Transmission Date: 20100115
  Serious: Yes (Life-Threatening, Hospitalization)
  Sender: FDA-Public Use
  Company Number: US-KINGPHARMUSA00001-K200901066

PATIENT
  Age: 70 Year
  Sex: Female

DRUGS (7)
  1. ALTACE [Suspect]
     Indication: CARDIAC FAILURE
     Dosage: 1.25 MG, QD
     Route: 048
     Dates: end: 20090617
  2. INSPRA [Suspect]
     Indication: CARDIAC FAILURE
     Dosage: 50 MG, QD
     Route: 048
     Dates: start: 20090401, end: 20090617
  3. CONTRAST MEDIA [Suspect]
     Dosage: UNK
     Dates: start: 20090601
  4. BERLTHYROX [Concomitant]
     Indication: HYPOTHYROIDISM
     Dosage: 125 U/G, UNK
     Route: 048
  5. FALITHROM [Concomitant]
     Indication: ATRIAL FIBRILLATION
     Dosage: UNK
     Route: 048
     Dates: end: 20090617
  6. SIMVASTATIN [Concomitant]
     Indication: HYPERCHOLESTEROLAEMIA
     Dosage: 20 MG, UNK
     Route: 048
  7. TOREM [Concomitant]
     Indication: CARDIAC FAILURE
     Dosage: 20 MG, UNK
     Route: 048

REACTIONS (7)
  - EPISTAXIS [None]
  - ERYSIPELAS [None]
  - HYPERKALAEMIA [None]
  - HYPONATRAEMIA [None]
  - LIVIDITY [None]
  - RENAL FAILURE [None]
  - SEPSIS [None]
